FAERS Safety Report 25870984 (Version 1)
Quarter: 2025Q4

REPORT INFORMATION
  Report Type: Spontaneous
  Country: US (occurrence: US)
  Receive Date: 20251001
  Receipt Date: 20251001
  Transmission Date: 20260117
  Serious: No
  Sender: PHARMALEX US CORPORATION
  Company Number: US-PharmaLex US Corporation-2185712

PATIENT
  Age: 76 Year
  Sex: Female

DRUGS (1)
  1. CYTALUX [Suspect]
     Active Substance: PAFOLACIANINE SODIUM
     Dates: start: 20250924, end: 20250924

REACTIONS (1)
  - Pruritus [Recovered/Resolved]

NARRATIVE: CASE EVENT DATE: 20250924
